FAERS Safety Report 25977923 (Version 3)
Quarter: 2025Q4

REPORT INFORMATION
  Report Type: Spontaneous
  Country: US (occurrence: US)
  Receive Date: 20251030
  Receipt Date: 20251203
  Transmission Date: 20260117
  Serious: Yes (Other)
  Sender: SYNDAX
  Company Number: US-SYNDAX PHARMACEUTICALS, INC.-2025US000838

PATIENT
  Sex: Male
  Weight: 106.98 kg

DRUGS (1)
  1. REVUFORJ [Suspect]
     Active Substance: REVUMENIB CITRATE
     Indication: Product used for unknown indication
     Dosage: 160 MILLIGRAM, BID
     Route: 048

REACTIONS (4)
  - Platelet count decreased [Unknown]
  - Leukaemia recurrent [Unknown]
  - Laboratory test abnormal [Unknown]
  - White blood cell count decreased [Unknown]
